FAERS Safety Report 4431879-5 (Version None)
Quarter: 2004Q3

REPORT INFORMATION
  Report Type: 
  Country: None (occurrence: None)
  Receive Date: 20040819
  Receipt Date: 20040804
  Transmission Date: 20050211
  Serious: Yes (Death)
  Sender: FDA-Public Use
  Company Number: A01200403678

PATIENT
  Age: 54 Year
  Sex: Female

DRUGS (5)
  1. ELOXATIN [Suspect]
     Indication: COLON CANCER METASTATIC
     Dosage: 85 MG/M2
     Route: 042
     Dates: start: 20040802, end: 20040802
  2. KETOROLAC TROMETAMOL [Concomitant]
  3. BUTYLHYOSCINE (HYOSCINE BUTYLBROMIDE) [Concomitant]
  4. TRAMADOL HCL [Concomitant]
  5. PLASMATIC IMMUNOGLOBULINS (IMMUNOGLOBULINS) [Concomitant]

REACTIONS (8)
  - BACK PAIN [None]
  - BLOOD BILIRUBIN INCREASED [None]
  - CEREBRAL HAEMORRHAGE [None]
  - DISSEMINATED INTRAVASCULAR COAGULATION [None]
  - FLUSHING [None]
  - HYPERTENSION [None]
  - RENAL FAILURE ACUTE [None]
  - TACHYPNOEA [None]
